FAERS Safety Report 24146089 (Version 1)
Quarter: 2024Q3

REPORT INFORMATION
  Report Type: Report from Study
  Country: GB (occurrence: GB)
  Receive Date: 20240729
  Receipt Date: 20240729
  Transmission Date: 20241016
  Serious: Yes (Other)
  Sender: REGENERON
  Company Number: GB-SA-SAC20240724001249

PATIENT
  Age: 59 Year
  Sex: Female

DRUGS (1)
  1. PRALUENT [Suspect]
     Active Substance: ALIROCUMAB
     Indication: Type IIa hyperlipidaemia
     Dosage: 75 MG, QOW
     Route: 058
     Dates: start: 20240718

REACTIONS (13)
  - Anaphylactic shock [Unknown]
  - Paraesthesia oral [Unknown]
  - Dizziness [Unknown]
  - Paraesthesia [Unknown]
  - Dyspnoea [Unknown]
  - Pharyngeal swelling [Unknown]
  - Hypoaesthesia [Unknown]
  - Injection site swelling [Recovering/Resolving]
  - Injection site erythema [Recovered/Resolved]
  - Throat irritation [Unknown]
  - Hernia [Unknown]
  - Decreased appetite [Unknown]
  - Asthma [Unknown]

NARRATIVE: CASE EVENT DATE: 20240718
